FAERS Safety Report 21563347 (Version 2)
Quarter: 2022Q4

REPORT INFORMATION
  Report Type: Report from Study
  Country: US (occurrence: US)
  Receive Date: 20221108
  Receipt Date: 20221126
  Transmission Date: 20230112
  Serious: No
  Sender: FDA-Public Use
  Company Number: US-ABBVIE-4187592

PATIENT
  Sex: Female

DRUGS (3)
  1. IMBRUVICA [Suspect]
     Active Substance: IBRUTINIB
     Indication: Chronic lymphocytic leukaemia
     Route: 048
     Dates: start: 202004
  2. IMBRUVICA [Suspect]
     Active Substance: IBRUTINIB
     Indication: Chronic lymphocytic leukaemia
     Route: 048
     Dates: start: 20200828, end: 20210823
  3. IMBRUVICA [Suspect]
     Active Substance: IBRUTINIB
     Indication: Chronic lymphocytic leukaemia
     Route: 048
     Dates: start: 20210823, end: 20220812

REACTIONS (9)
  - Cervical radiculopathy [Unknown]
  - Skin exfoliation [Unknown]
  - Nerve injury [Unknown]
  - Alopecia [Unknown]
  - Hypoaesthesia [Unknown]
  - Fall [Unknown]
  - Cervicogenic vertigo [Unknown]
  - Urinary tract infection [Unknown]
  - Dry skin [Unknown]
